FAERS Safety Report 6105254-1 (Version None)
Quarter: 2009Q1

REPORT INFORMATION
  Report Type: 
  Country: None (occurrence: None)
  Receive Date: 20090227
  Receipt Date: 20080703
  Transmission Date: 20090719
  Serious: Yes (Life-Threatening, Hospitalization)
  Sender: FDA-Public Use
  Company Number: RB-2299-2008

PATIENT
  Age: 34 Year
  Sex: Female

DRUGS (6)
  1. SUBOXONE [Suspect]
     Indication: DRUG DEPENDENCE
     Dosage: 8 MG
  2. CLOZAPINE [Suspect]
     Indication: DRUG USE FOR UNKNOWN INDICATION
  3. LITHIUM CARBONATE [Suspect]
     Indication: BIPOLAR DISORDER
     Dosage: ORAL
     Route: 048
  4. CYMBALTA [Suspect]
     Indication: DEPRESSION
     Dosage: ORAL
     Route: 048
  5. SEROQUEL [Suspect]
     Dosage: ORAL
     Route: 048
  6. TOPAMAX [Suspect]
     Indication: MIGRAINE
     Dosage: ORAL
     Route: 048

REACTIONS (1)
  - RESPIRATORY DEPRESSION [None]
